FAERS Safety Report 15768538 (Version 4)
Quarter: 2019Q1

REPORT INFORMATION
  Report Type: Spontaneous
  Country: US (occurrence: US)
  Receive Date: 20181227
  Receipt Date: 20190123
  Transmission Date: 20190417
  Serious: Yes (Other)
  Sender: FDA-Public Use
  Company Number: US-BION-007594

PATIENT
  Age: 12 Year
  Sex: Female

DRUGS (1)
  1. BION PHARMA^S CLOBAZAM ORAL SUSPENSION 2.5 MG/ML [Suspect]
     Active Substance: CLOBAZAM
     Indication: EPILEPSY
     Route: 048
     Dates: start: 20181120

REACTIONS (5)
  - Condition aggravated [Unknown]
  - Product substitution issue [Unknown]
  - Drug ineffective [Not Recovered/Not Resolved]
  - Head injury [Not Recovered/Not Resolved]
  - Epilepsy [Not Recovered/Not Resolved]
